FAERS Safety Report 6449628-8 (Version None)
Quarter: 2009Q4

REPORT INFORMATION
  Report Type: 
  Country: None (occurrence: None)
  Receive Date: 20091120
  Receipt Date: 20091027
  Transmission Date: 20100525
  Serious: Yes (Other)
  Sender: FDA-Public Use
  Company Number: FR-PFIZER INC-2009288810

PATIENT
  Age: 69 Year
  Sex: Male

DRUGS (2)
  1. ZOXAN [Suspect]
     Indication: BENIGN PROSTATIC HYPERPLASIA
     Dosage: UNK
     Dates: start: 20080101
  2. COVERSYL [Concomitant]
     Indication: HYPERTENSION
     Dosage: 2.5 MG, UNK

REACTIONS (3)
  - CATARACT [None]
  - DRY EYE [None]
  - EYE PAIN [None]
